FAERS Safety Report 5124726-X (Version None)
Quarter: 2006Q4

REPORT INFORMATION
  Report Type: 
  Country: None (occurrence: None)
  Receive Date: 20061006
  Receipt Date: 20060905
  Transmission Date: 20070319
  Serious: Yes (Death, Life-Threatening)
  Sender: FDA-Public Use
  Company Number: 2006-143429-NL

PATIENT
  Age: 58 Year
  Sex: Female

DRUGS (5)
  1. DANAPAROID SODIUM [Suspect]
     Indication: DISSEMINATED INTRAVASCULAR COAGULATION
     Dosage: NI; INTRAVENOUS DRIP
     Route: 041
     Dates: start: 20051208, end: 20051209
  2. ANTITHROBIN III [Concomitant]
  3. FINIBAX [Concomitant]
  4. IMMUNE GLOBULIN INTRAVENOUS (HUMAN) [Concomitant]
  5. HYDROCORTISONE SODIUM PHOSPHATE [Concomitant]

REACTIONS (8)
  - DISEASE PROGRESSION [None]
  - DISSEMINATED INTRAVASCULAR COAGULATION [None]
  - HAEMOLYTIC ANAEMIA [None]
  - HEPATIC FUNCTION ABNORMAL [None]
  - MULTI-ORGAN FAILURE [None]
  - OLIGURIA [None]
  - RENAL IMPAIRMENT [None]
  - SEPTIC SHOCK [None]
